FAERS Safety Report 21735945 (Version 4)
Quarter: 2023Q1

REPORT INFORMATION
  Report Type: Spontaneous
  Country: US (occurrence: US)
  Receive Date: 20221215
  Receipt Date: 20230308
  Transmission Date: 20230418
  Serious: No
  Sender: FDA-Public Use
  Company Number: US-PFIZER INC-2021402773

PATIENT
  Age: 84 Year
  Sex: Female
  Weight: 44.45 kg

DRUGS (1)
  1. PREMARIN [Suspect]
     Active Substance: ESTROGENS, CONJUGATED
     Dosage: 0.5 G (0.5 GRAM PER VAGINA AS DIRECTED)
     Route: 067

REACTIONS (3)
  - Product prescribing error [Unknown]
  - Confusional state [Unknown]
  - Agitation [Unknown]
